FAERS Safety Report 13553882 (Version 1)
Quarter: 2017Q2

REPORT INFORMATION
  Report Type: Spontaneous
  Country: US (occurrence: US)
  Receive Date: 20170517
  Receipt Date: 20170517
  Transmission Date: 20170830
  Serious: Yes (Other)
  Sender: FDA-Public Use
  Company Number: US-APOTEX-2017AP012071

PATIENT
  Age: 20 Year
  Sex: Female

DRUGS (9)
  1. ADRIAMYCIN [Suspect]
     Active Substance: DOXORUBICIN HYDROCHLORIDE
     Indication: PSEUDOMONAS INFECTION
     Route: 065
  2. CIPROFLOXACIN HYDROCHLORIDE. [Suspect]
     Active Substance: CIPROFLOXACIN HYDROCHLORIDE
     Indication: PSEUDOMONAS INFECTION
     Route: 065
  3. IMIPENEM [Suspect]
     Active Substance: IMIPENEM
     Indication: PSEUDOMONAS INFECTION
     Route: 065
  4. TETRACYCLINE                       /00001702/ [Suspect]
     Active Substance: TETRACYCLINE
     Indication: PSEUDOMONAS INFECTION
     Route: 065
  5. TOBRAMYCIN. [Suspect]
     Active Substance: TOBRAMYCIN
     Indication: PSEUDOMONAS INFECTION
     Route: 065
  6. AZTREONAM. [Suspect]
     Active Substance: AZTREONAM
     Indication: PSEUDOMONAS INFECTION
     Route: 065
  7. PIPERACILLIN [Suspect]
     Active Substance: PIPERACILLIN
     Indication: PSEUDOMONAS INFECTION
     Route: 065
  8. TIMENTIN /00973701/ [Suspect]
     Active Substance: CLAVULANATE POTASSIUM\TICARCILLIN DISODIUM
     Indication: PSEUDOMONAS INFECTION
     Route: 065
  9. CEFTAZIDIME. [Suspect]
     Active Substance: CEFTAZIDIME
     Indication: PSEUDOMONAS INFECTION
     Route: 065

REACTIONS (2)
  - Ototoxicity [Unknown]
  - Ototoxicity [Unknown]

NARRATIVE: CASE EVENT DATE: 201704
